FAERS Safety Report 6820842-2 (Version None)
Quarter: 2010Q3

REPORT INFORMATION
  Report Type: 
  Country: None (occurrence: None)
  Receive Date: 20100707
  Receipt Date: 20070727
  Transmission Date: 20110219
  Serious: Yes (Other)
  Sender: FDA-Public Use
  Company Number: US-PFIZER INC-2007062382

PATIENT
  Sex: Female
  Weight: 56.7 kg

DRUGS (3)
  1. SERTRALINE [Suspect]
     Indication: DEPRESSION
     Dates: start: 20070725, end: 20070726
  2. VITAMINS [Concomitant]
  3. CALCIUM CARBONATE [Concomitant]

REACTIONS (3)
  - DIARRHOEA [None]
  - DRUG HYPERSENSITIVITY [None]
  - VOMITING [None]
